FAERS Safety Report 7512804-7 (Version None)
Quarter: 2011Q2

REPORT INFORMATION
  Report Type: 
  Country: None (occurrence: None)
  Receive Date: 20110531
  Receipt Date: 20110523
  Transmission Date: 20111010
  Serious: Yes (Other)
  Sender: FDA-Public Use
  Company Number: B0722308A

PATIENT

DRUGS (1)
  1. PAXIL [Suspect]
     Route: 048

REACTIONS (1)
  - COLITIS COLLAGENOUS [None]
